FAERS Safety Report 9685090 (Version 1)
Quarter: 2013Q4

REPORT INFORMATION
  Report Type: Spontaneous
  Country: FR (occurrence: FR)
  Receive Date: 20131113
  Receipt Date: 20131113
  Transmission Date: 20140711
  Serious: Yes (Hospitalization)
  Sender: FDA-Public Use
  Company Number: FR-JNJFOC-20131103291

PATIENT
  Age: 30 Year
  Sex: Male

DRUGS (2)
  1. INFLIXIMAB, RECOMBINANT [Suspect]
     Indication: CROHN^S DISEASE
     Dosage: 3RD OR 4TH DRIP OF INFLIXIMAB
     Route: 042
     Dates: start: 2013
  2. INFLIXIMAB, RECOMBINANT [Suspect]
     Indication: CROHN^S DISEASE
     Route: 042
     Dates: start: 201307

REACTIONS (3)
  - Hemiparesis [Unknown]
  - Cough [Unknown]
  - Back pain [Unknown]
